FAERS Safety Report 6034746-9 (Version None)
Quarter: 2009Q1

REPORT INFORMATION
  Report Type: 
  Country: None (occurrence: None)
  Receive Date: 20090109
  Receipt Date: 20090109
  Transmission Date: 20090719
  Serious: Yes (Hospitalization)
  Sender: FDA-Public Use
  Company Number: None

PATIENT
  Sex: Male
  Weight: 88 kg

DRUGS (15)
  1. WARFARIN [Suspect]
     Indication: DEEP VEIN THROMBOSIS
     Dosage: 10MG ALT 15MG DAILY PO  (DURATION: CHRONIC)
     Route: 048
  2. CELLCEPT [Concomitant]
  3. DOXYCYCLINE [Concomitant]
  4. LASIX [Concomitant]
  5. METFORMIN HCL [Concomitant]
  6. GLIPIZIDE [Concomitant]
  7. HUMALOG [Concomitant]
  8. LAMICTAL [Concomitant]
  9. LANTUS [Concomitant]
  10. LEXAPRO [Concomitant]
  11. MESTINON [Concomitant]
  12. POTASSIUM CHLORIDE [Concomitant]
  13. PREDNISONE [Concomitant]
  14. TYLENOL (CAPLET) [Concomitant]
  15. ZOCOR [Concomitant]

REACTIONS (1)
  - HAEMARTHROSIS [None]
